FAERS Safety Report 20567199 (Version 1)
Quarter: 2022Q1

REPORT INFORMATION
  Report Type: Spontaneous
  Country: US (occurrence: US)
  Receive Date: 20220308
  Receipt Date: 20220308
  Transmission Date: 20220423
  Serious: No
  Sender: FDA-Public Use
  Company Number: US-BAUSCH-BL-2022-005700

PATIENT
  Sex: Male

DRUGS (3)
  1. DORZOLAMIDE HYDROCHLORIDE\TIMOLOL MALEATE [Suspect]
     Active Substance: DORZOLAMIDE HYDROCHLORIDE\TIMOLOL MALEATE
     Indication: Glaucoma
     Route: 047
     Dates: start: 202202, end: 202202
  2. COMBIGAN [Concomitant]
     Active Substance: BRIMONIDINE TARTRATE\TIMOLOL MALEATE
     Indication: Product used for unknown indication
     Route: 047
     Dates: end: 2022
  3. COMBIGAN [Concomitant]
     Active Substance: BRIMONIDINE TARTRATE\TIMOLOL MALEATE
     Dates: start: 202202

REACTIONS (5)
  - Ocular discomfort [Recovered/Resolved]
  - Periorbital swelling [Recovered/Resolved]
  - Instillation site pain [Recovered/Resolved]
  - Lacrimation increased [Recovered/Resolved]
  - Allergic sinusitis [Recovered/Resolved]

NARRATIVE: CASE EVENT DATE: 20220201
